FAERS Safety Report 5032314-9 (Version None)
Quarter: 2006Q2

REPORT INFORMATION
  Report Type: 
  Country: None (occurrence: None)
  Receive Date: 20060620
  Receipt Date: 20060620
  Transmission Date: 20061013
  Serious: Yes (Life-Threatening, Hospitalization)
  Sender: FDA-Public Use
  Company Number: None

PATIENT
  Age: 46 Year
  Sex: Female
  Weight: 72.5755 kg

DRUGS (2)
  1. YASMIN [Suspect]
     Indication: HOT FLUSH
     Dosage: 1 TABLET PER DAY
     Dates: start: 20030815, end: 20060417
  2. YASMIN [Suspect]
     Indication: MENOPAUSE
     Dosage: 1 TABLET PER DAY
     Dates: start: 20030815, end: 20060417

REACTIONS (2)
  - PAIN [None]
  - PULMONARY EMBOLISM [None]
